FAERS Safety Report 13274171 (Version 1)
Quarter: 2017Q1

REPORT INFORMATION
  Report Type: Spontaneous
  Country: US (occurrence: US)
  Receive Date: 20170227
  Receipt Date: 20170227
  Transmission Date: 20170428
  Serious: Yes (Hospitalization, Other)
  Sender: FDA-Public Use
  Company Number: US-SA-2017SA029512

PATIENT
  Sex: Male

DRUGS (2)
  1. LANTUS SOLOSTAR [Suspect]
     Active Substance: INSULIN GLARGINE
     Indication: DIABETES MELLITUS
     Dosage: DOSE IS 3-4 UNITS.?FREQUENCY IS TWO TIMES.
     Route: 065
     Dates: start: 2013
  2. SOLOSTAR [Concomitant]
     Active Substance: DEVICE
     Indication: DIABETES MELLITUS
     Dates: start: 2013

REACTIONS (7)
  - Multiple sclerosis [Unknown]
  - Pain [Unknown]
  - Product use issue [Unknown]
  - Intervertebral disc protrusion [Unknown]
  - Gout [Unknown]
  - Hypoaesthesia [Unknown]
  - Depression [Unknown]

NARRATIVE: CASE EVENT DATE: 2013
